FAERS Safety Report 11323807 (Version 1)
Quarter: 2015Q3

REPORT INFORMATION
  Report Type: Spontaneous
  Country: GR (occurrence: GR)
  Receive Date: 20150730
  Receipt Date: 20150730
  Transmission Date: 20151125
  Serious: Yes (Hospitalization, Other)
  Sender: FDA-Public Use
  Company Number: GR-009507513-1502GRC006738

PATIENT
  Age: 70 Year
  Sex: Female

DRUGS (1)
  1. INEGY [Suspect]
     Active Substance: EZETIMIBE\SIMVASTATIN
     Indication: DYSLIPIDAEMIA
     Dosage: 1 DF, QD
     Route: 048
     Dates: start: 2010

REACTIONS (3)
  - Uterine rupture [Unknown]
  - Arthralgia [Unknown]
  - Vascular pain [Unknown]

NARRATIVE: CASE EVENT DATE: 20150702
